FAERS Safety Report 14495353 (Version 1)
Quarter: 2018Q1

REPORT INFORMATION
  Report Type: Spontaneous
  Country: US (occurrence: US)
  Receive Date: 20180206
  Receipt Date: 20180206
  Transmission Date: 20180509
  Serious: No
  Sender: FDA-Public Use
  Company Number: US-SMITH AND NEPHEW, INC-2017SMT00392

PATIENT
  Sex: Male
  Weight: 108.84 kg

DRUGS (6)
  1. REGRANEX [Suspect]
     Active Substance: BECAPLERMIN
     Indication: WOUND
     Dosage: UNK, 1X/DAY 12 HOURS ON AND 12 HOURS OFF
     Route: 061
     Dates: start: 201704, end: 20170503
  2. FUROSEMIDE. [Concomitant]
     Active Substance: FUROSEMIDE
  3. OXYCODONE [Concomitant]
     Active Substance: OXYCODONE
     Dosage: 5 MG, 2X/DAY
  4. JANUVIA [Concomitant]
     Active Substance: SITAGLIPTIN PHOSPHATE
  5. GABAPENTIN. [Concomitant]
     Active Substance: GABAPENTIN
     Dosage: 4000 MG, 1X/DAY
  6. UNSPECIFIED BLOOD PRESSURE MEDICATIONS [Concomitant]

REACTIONS (1)
  - Wound complication [Not Recovered/Not Resolved]

NARRATIVE: CASE EVENT DATE: 2017
